FAERS Safety Report 7521666-3 (Version None)
Quarter: 2011Q2

REPORT INFORMATION
  Report Type: 
  Country: None (occurrence: None)
  Receive Date: 20110524
  Receipt Date: 20110510
  Transmission Date: 20111010
  Serious: Yes (Other)
  Sender: FDA-Public Use
  Company Number: CIP10002162

PATIENT
  Age: 80 Year
  Sex: Female
  Weight: 77.1 kg

DRUGS (35)
  1. LOTREL  /01289101/ (AMLODIPINE, BENAZEPRIL HYDROCHLORIDE) [Concomitant]
  2. SYNTHROID [Concomitant]
  3. GATIFLOXACIN [Concomitant]
  4. AZITHROMYCIN [Concomitant]
  5. VYTORIN [Concomitant]
  6. VESICARE [Concomitant]
  7. NEOMYCIN [Concomitant]
  8. DOXYCYCLINE [Concomitant]
  9. BENZONATATE [Concomitant]
  10. FOSAMAX [Suspect]
     Dosage: 70 MG ONCE WEEKLY, ORAL
     Route: 048
     Dates: start: 20010626
  11. CIPROFLOXACIN [Concomitant]
  12. CENTRIUM SILVER /01292501/ (ASCORBIC ACID, CALCIUM, MINERALS NOS, RETI [Concomitant]
  13. LOTRISONE [Concomitant]
  14. REPLIVA (SUCCINIC ACID) [Concomitant]
  15. ACHIPHEX (RABEPRAZOLE SODIUM) [Concomitant]
  16. CELEBREX [Concomitant]
  17. MULTIVITAMINS (ASCORBIC ACID, ERGOCALIFEROL, FOLIC ACID, NICOTINAMIDE, [Concomitant]
  18. FLUOCINONIDE (FLUCOINONIDE) [Concomitant]
  19. DARVOCET-N (DEXTROPROPOXPHENE NAPSILATE, PARACETAMOL) [Concomitant]
  20. MOBIC [Concomitant]
  21. MICONAZOLE (MICONAZOLE) [Concomitant]
  22. ERYTHROMYCIN [Concomitant]
  23. TUSSIONEX PENNKINETIC (CHLORPHENAMINE, HYDROCODONE) [Concomitant]
  24. ACTONEL [Suspect]
     Indication: OSTEOPOROSIS
     Dosage: 35 MG ONCE WEEKLY, ORAL; 35 MG ONCE WEEKLY, ORAL
     Route: 048
     Dates: start: 20080901
  25. ACTONEL [Suspect]
     Indication: OSTEOPOROSIS
     Dosage: 35 MG ONCE WEEKLY, ORAL; 35 MG ONCE WEEKLY, ORAL
     Route: 048
     Dates: start: 20061013, end: 20080701
  26. TOPROL-XL [Concomitant]
  27. CALCIUM (CALCIUM) [Concomitant]
  28. PROTONIX [Concomitant]
  29. ZOLOFT [Concomitant]
  30. LOVAZA (OMEGA-3 MARINE TRIGLYCERIDED) [Concomitant]
  31. ASPIRIN BUFFERED (ACETYLSALICYLIC ACID) [Concomitant]
  32. ZOCOR [Concomitant]
  33. OXYBUTYNIN (OXYBUTANIN) [Concomitant]
  34. CICLOPIROX (CICLOPIROX) [Concomitant]
  35. KETOROLAC (KETOROLAC) [Concomitant]

REACTIONS (21)
  - TOOTH FRACTURE [None]
  - CHEST DISCOMFORT [None]
  - ULCER [None]
  - GINGIVAL PAIN [None]
  - DEVICE CONNECTION ISSUE [None]
  - TOOTH ABSCESS [None]
  - SPINAL FRACTURE [None]
  - TOOTHACHE [None]
  - IMPAIRED HEALING [None]
  - MUSCULOSKELETAL PAIN [None]
  - PATHOLOGICAL FRACTURE [None]
  - MUSCULOSKELETAL DISCOMFORT [None]
  - OSTEONECROSIS OF JAW [None]
  - FACIAL PAIN [None]
  - PAIN IN JAW [None]
  - GINGIVAL SWELLING [None]
  - STRESS FRACTURE [None]
  - FEMUR FRACTURE [None]
  - LOW TURNOVER OSTEOPATHY [None]
  - BONE DISORDER [None]
  - DENTAL CARIES [None]
